FAERS Safety Report 5921888-9 (Version None)
Quarter: 2008Q4

REPORT INFORMATION
  Report Type: 
  Country: None (occurrence: None)
  Receive Date: 20081015
  Receipt Date: 20081006
  Transmission Date: 20090506
  Serious: No
  Sender: FDA-Public Use
  Company Number: TAP2008Q00892

PATIENT
  Age: 66 Year
  Sex: Female

DRUGS (1)
  1. PREVACID [Suspect]
     Dosage: (0.5 CAP., ONCE EVERY OTHER DAY), PER ORAL
     Route: 048
     Dates: start: 20080901, end: 20080901

REACTIONS (2)
  - MYODESOPSIA [None]
  - VISUAL IMPAIRMENT [None]
